FAERS Safety Report 21938844 (Version 1)
Quarter: 2023Q1

REPORT INFORMATION
  Report Type: Report from Study
  Country: US (occurrence: US)
  Receive Date: 20230201
  Receipt Date: 20230201
  Transmission Date: 20230418
  Serious: Yes (Death, Hospitalization)
  Sender: FDA-Public Use
  Company Number: US-EXELIXIS-CABO-22051982

PATIENT
  Age: 60 Year
  Sex: Male

DRUGS (2)
  1. CABOMETYX [Suspect]
     Active Substance: CABOZANTINIB S-MALATE
     Indication: Non-small cell lung cancer
     Dosage: 40 MG, QD
     Route: 048
     Dates: start: 202204
  2. CABOMETYX [Suspect]
     Active Substance: CABOZANTINIB S-MALATE
     Dosage: 20 MG, QD
     Route: 048
     Dates: start: 202206, end: 202208

REACTIONS (20)
  - Thrombosis [Unknown]
  - Death [Fatal]
  - Oral mucosal eruption [Unknown]
  - Skin burning sensation [Unknown]
  - Erythema [Unknown]
  - Skin exfoliation [Unknown]
  - Peripheral swelling [Unknown]
  - Pruritus [Unknown]
  - Fatigue [Unknown]
  - Dry mouth [Unknown]
  - Abdominal pain [Recovering/Resolving]
  - Decreased appetite [Unknown]
  - Blood pressure increased [Not Recovered/Not Resolved]
  - Pain in extremity [Unknown]
  - Stomatitis [Unknown]
  - Nausea [Unknown]
  - Diarrhoea [Unknown]
  - Vomiting [Unknown]
  - Weight decreased [Unknown]
  - Off label use [Unknown]

NARRATIVE: CASE EVENT DATE: 20220516
